FAERS Safety Report 7528749-2 (Version None)
Quarter: 2011Q2

REPORT INFORMATION
  Report Type: 
  Country: None (occurrence: None)
  Receive Date: 20110607
  Receipt Date: 20101229
  Transmission Date: 20111010
  Serious: No
  Sender: FDA-Public Use
  Company Number: US-ASTRAZENECA-2011SE02678

PATIENT
  Sex: Male

DRUGS (3)
  1. OMEPRAZOLE [Concomitant]
     Dosage: UNKNOWN
  2. ROSACEA MEDICATION [Concomitant]
     Dosage: UNKNOWN
  3. PRILOSEC OTC [Suspect]
     Route: 048

REACTIONS (3)
  - INCORRECT DOSE ADMINISTERED [None]
  - DRY MOUTH [None]
  - INAPPROPRIATE SCHEDULE OF DRUG ADMINISTRATION [None]
